FAERS Safety Report 10029800 (Version 3)
Quarter: 2014Q3

REPORT INFORMATION
  Report Type: Report from Study
  Country: US (occurrence: None)
  Receive Date: 20140320
  Receipt Date: 20140905
  Transmission Date: 20150326
  Serious: Yes (Death, Life-Threatening, Hospitalization)
  Sender: FDA-Public Use
  Company Number: KAD201403-000341

PATIENT
  Age: 62 Year
  Sex: Male
  Weight: 87.1 kg

DRUGS (17)
  1. ALBUMIN (ALBUMIN) [Concomitant]
  2. TACROLIMUS (TACROLIMUS) [Concomitant]
     Active Substance: TACROLIMUS
  3. SOF/LDV (SOFOSBUVIR, LEDIPASVIR) [Suspect]
     Active Substance: LEDIPASVIR\SOFOSBUVIR
     Route: 048
     Dates: start: 20131211, end: 20140223
  4. PACKED RED BLOOD CELLS (PACKED RED BLOOD CELLS) [Concomitant]
  5. FRESH FROZEN PLASMA (FRESH FROZEN PLASMA) [Concomitant]
  6. LISINOPRIL/HCTZ (LISINOPRIL, HYDROCHLOROTHIAZIDE) [Concomitant]
  7. RIBAVIRIN. [Suspect]
     Active Substance: RIBAVIRIN
     Route: 048
     Dates: start: 20131211, end: 20140128
  8. MICROFUNGIN [Concomitant]
  9. FUROSEMIDE (FUROSEMIDE) [Concomitant]
     Active Substance: FUROSEMIDE
  10. MAGNESIUM HYDROXIDE (MAGNESIUM HYDROXIDE) [Concomitant]
  11. METOPROLOL (METOPROLOL) [Concomitant]
     Active Substance: METOPROLOL
  12. OXYCODONE (OXYCODONE) [Concomitant]
     Active Substance: OXYCODONE
  13. ZOSYN (PIPERACILLIN SODIUM, TAZOBACTAM SODIUM) [Concomitant]
  14. MAGNESIUM OXIDE (MAGNESIUM OXIDE) [Concomitant]
     Active Substance: MAGNESIUM OXIDE
  15. RANITIDINE [Concomitant]
     Active Substance: RANITIDINE\RANITIDINE HYDROCHLORIDE
  16. ASPIRIN (ACETYLSALICYLIC ACID) [Concomitant]
     Active Substance: ASPIRIN
  17. SPIRONOLACTONE (SPIRONOLACTONE) [Concomitant]
     Active Substance: SPIRONOLACTONE

REACTIONS (12)
  - Sepsis [None]
  - Hepatic necrosis [None]
  - Enterococcus test positive [None]
  - Pleural effusion [None]
  - Hepatitis C [None]
  - Ulcer [None]
  - Portal vein thrombosis [None]
  - Renal failure acute [None]
  - Haemolytic anaemia [None]
  - Splenic vein thrombosis [None]
  - Liver abscess [None]
  - Pneumobilia [None]

NARRATIVE: CASE EVENT DATE: 20140129
